FAERS Safety Report 14530263 (Version 5)
Quarter: 2018Q2

REPORT INFORMATION
  Report Type: Report from Study
  Country: JP (occurrence: JP)
  Receive Date: 20180214
  Receipt Date: 20180607
  Transmission Date: 20180711
  Serious: Yes (Hospitalization)
  Sender: FDA-Public Use
  Company Number: JP-GLAXOSMITHKLINE-JP2018JPN006113

PATIENT
  Age: 63 Year
  Sex: Female
  Weight: 83 kg

DRUGS (44)
  1. PLAQUENIL [Suspect]
     Active Substance: HYDROXYCHLOROQUINE SULFATE
     Indication: SYSTEMIC LUPUS ERYTHEMATOSUS
     Dosage: 200 MG, QD, AFTER BREAKFAST
     Route: 048
  2. ITOROL [Concomitant]
     Active Substance: ISOSORBIDE MONONITRATE
     Dosage: 40 MG, BID, AFTER BREAKFAST AND DINNER
  3. FLUITRAN [Concomitant]
     Active Substance: TRICHLORMETHIAZIDE
     Dosage: 2 MG, QD, AFTER BREAKFAST
  4. TRIAZOLAM TABLETS [Concomitant]
     Dosage: 0.5 MG, QD, BEFORE BEDTIME
  5. BROTIZOLAM [Concomitant]
     Active Substance: BROTIZOLAM
     Dosage: 0.25 MG, QD, BEFORE BEDTIME
  6. MECOBALAMIN [Concomitant]
     Active Substance: METHYLCOBALAMIN
     Dosage: 500 ?G, TID, AFTER BREAKFAST, LUNCH AND DINNER
  7. EBRANTIL CAPSULES [Concomitant]
     Dosage: 30 MG, BID, AFTER BREAKFAST AND DINNER
  8. MAGMITT TABLET [Concomitant]
     Dosage: 330 MG, TID, AFTER BREAKFAST, LUNCH AND DINNER
  9. LIMAPROST ALFADEX [Concomitant]
     Active Substance: LIMAPROST
     Dosage: 5 ?G, TID, AFTER BREAKFAST, LUNCH AND DINNER
  10. SYMBICORT [Concomitant]
     Active Substance: BUDESONIDE\FORMOTEROL FUMARATE DIHYDRATE
     Dosage: UNK
  11. GLYCERIN. [Concomitant]
     Active Substance: GLYCERIN
     Dosage: UNK
  12. PREDONINE [Concomitant]
     Active Substance: PREDNISOLONE
     Dosage: UNK
  13. ROHYPNOL TABLETS [Concomitant]
     Dosage: 1 MG, QD, BEFORE BEDTIME
  14. BOFUTSUSHOSAN [Concomitant]
     Active Substance: HERBALS
     Dosage: 2.5 G, TID, AFTER BREAKFAST, LUNCH AND DINNER
  15. MEXILETINE HYDROCHLORIDE. [Concomitant]
     Active Substance: MEXILETINE HYDROCHLORIDE
     Dosage: 50 MG, BID, AFTER BREAKFAST AND DINNER
  16. LUPRAC [Concomitant]
     Active Substance: TORSEMIDE
     Dosage: 8 MG, QD
  17. BELIMUMAB [Suspect]
     Active Substance: BELIMUMAB
     Indication: SYSTEMIC LUPUS ERYTHEMATOSUS
     Dosage: 10 MG/KG, UNK
     Route: 041
     Dates: start: 20171214, end: 20180111
  18. RINDERON V [Concomitant]
     Active Substance: BETAMETHASONE VALERATE
     Dosage: 0.25 MG, QD, AFTER BREAKFAST
  19. CONSTAN [Concomitant]
     Active Substance: ALPRAZOLAM
     Dosage: 0.4 MG, TID,MORNING, EVENING, BEFORE BEDTIME
  20. BAYASPIRIN TABLETS [Concomitant]
     Dosage: 100 MG, QD, AFTER MORNING
  21. SUMILU STICK [Concomitant]
     Dosage: UNK, BID
  22. DOMPERIDONE [Concomitant]
     Active Substance: DOMPERIDONE
     Dosage: 5 MG, TID, AFTER BREAKFAST, LUNCH AND DINNER
  23. SHAKUYAKUKANZOTO [Concomitant]
     Active Substance: HERBALS
     Indication: PAIN
     Dosage: 2.5 G, PRN
  24. RINDERON V [Concomitant]
     Active Substance: BETAMETHASONE VALERATE
     Indication: SYSTEMIC LUPUS ERYTHEMATOSUS
     Dosage: 0.5 MG, 1D
     Dates: start: 20120228
  25. GRANDAXIN [Concomitant]
     Active Substance: TOFISOPAM
     Dosage: 50 MG, TID, AFTER BREAKFAST, LUNCH AND DINNER
  26. LANSOPRAZOLE-OD TABLETS [Concomitant]
     Dosage: 15 MG, QD, AFTER DINNER
  27. METGLUCO TABLETS [Concomitant]
     Dosage: 250 MG, BID, AFTER BREAKFAST AND DINNER
  28. CONIEL [Concomitant]
     Active Substance: BENIDIPINE HYDROCHLORIDE
     Dosage: 4 MG, BID, AFTER BREAKFAST AND DINNER
  29. TRAMCET COMBINATION TABLETS [Concomitant]
     Indication: SYSTEMIC LUPUS ERYTHEMATOSUS
     Dosage: 2 DF, QID, AFTER BREAKFAST, LUNCH AND DINNER, BEFORE BEDTIME
  30. ISOSORBIDE DINITRATE TAPE [Concomitant]
     Dosage: 40 MG, QD, MORNING
  31. KIPRES TABLETS [Concomitant]
     Dosage: 10 MG, QD, AFTER DINNER
  32. ANTEBATE OINTMENT [Concomitant]
     Active Substance: BETAMETHASONE BUTYRATE PROPIONATE
     Indication: SYSTEMIC LUPUS ERYTHEMATOSUS
     Dosage: UNK
  33. LOXONIN TABLETS [Suspect]
     Active Substance: LOXOPROFEN SODIUM
     Indication: SYSTEMIC LUPUS ERYTHEMATOSUS
     Dosage: 60 MG, BID, AFTER BREAKFAST AND DINNER
     Route: 048
  34. PROGRAF [Suspect]
     Active Substance: TACROLIMUS\TACROLIMUS ANHYDROUS
     Indication: SYSTEMIC LUPUS ERYTHEMATOSUS
     Dosage: 0.5 MG, QD, AFTER DINNER
     Route: 048
  35. CELESTAMINE COMBINATION TABLETS [Concomitant]
     Indication: SYSTEMIC LUPUS ERYTHEMATOSUS
     Dosage: 1 DF, QD, BEFORE BEDTIME
     Dates: start: 20121030
  36. EPERISONE HYDROCHLORIDE [Concomitant]
     Active Substance: EPERISONE HYDROCHLORIDE
     Dosage: 50 MG, QD, AFTER DINNER
  37. DEPAKENE-R TABLET [Concomitant]
     Dosage: 200 MG, BID,AFTER BREAKFAST AND DINNER
  38. INFLUENZA HA VACCINE [Concomitant]
     Active Substance: INFLUENZA VIRUS VACCINE
     Indication: PROPHYLAXIS
     Dates: start: 20171128
  39. NIPOLAZIN TABLETS [Concomitant]
     Indication: SYSTEMIC LUPUS ERYTHEMATOSUS
     Dosage: 3 MG, BID, AFTER BREAKFAST AND DINNER
  40. LIXIANA [Concomitant]
     Active Substance: EDOXABAN TOSYLATE
     Dosage: 60 MG, QD AFTER BREAKFAST
  41. FUROSEMIDE TABLETS [Concomitant]
     Active Substance: FUROSEMIDE
     Dosage: 20 MG, BID, AFTER BREAKFAST AND LUNCH
  42. MAINTATE (BISOPROLOL FUMARATE) [Concomitant]
     Dosage: 5 MG, QD, AFTER DINNER
  43. PAROXETINE. [Concomitant]
     Active Substance: PAROXETINE
     Dosage: 20 MG, QD, AFTER DINNER
  44. FESIN (JAPAN) [Concomitant]
     Active Substance: IRON SUCROSE
     Dosage: UNK

REACTIONS (1)
  - Proteinuria [Recovering/Resolving]

NARRATIVE: CASE EVENT DATE: 20171228
